FAERS Safety Report 24450751 (Version 2)
Quarter: 2024Q4

REPORT INFORMATION
  Report Type: Report from Study
  Country: US (occurrence: US)
  Receive Date: 20241017
  Receipt Date: 20241027
  Transmission Date: 20250114
  Serious: Yes (Other)
  Sender: ABBVIE
  Company Number: US-ABBVIE-5960342

PATIENT
  Sex: Female

DRUGS (1)
  1. BOTOX [Suspect]
     Active Substance: ONABOTULINUMTOXINA
     Indication: Muscle spasms
     Dosage: TIME INTERVAL: AS NECESSARY
     Route: 065

REACTIONS (6)
  - Intervertebral disc operation [Unknown]
  - Ankylosing spondylitis [Unknown]
  - Intervertebral disc protrusion [Unknown]
  - Headache [Unknown]
  - Vertebral osteophyte [Unknown]
  - Pain [Unknown]
